FAERS Safety Report 7928178-3 (Version None)
Quarter: 2011Q4

REPORT INFORMATION
  Report Type: 
  Country: None (occurrence: None)
  Receive Date: 20111118
  Receipt Date: 20111110
  Transmission Date: 20120403
  Serious: Yes (Hospitalization)
  Sender: FDA-Public Use
  Company Number: US-JNJFOC-20111104423

PATIENT
  Sex: Female

DRUGS (1)
  1. REMICADE [Suspect]
     Indication: RHEUMATOID ARTHRITIS
     Dosage: DOSE UNSPECIFIED, ^EVERY 8 WEEKS^;  2 INFUSIONS TOTAL
     Route: 042
     Dates: start: 20110101, end: 20110101

REACTIONS (4)
  - WHEELCHAIR USER [None]
  - DISORIENTATION [None]
  - COUGH [None]
  - ASTHENIA [None]
